FAERS Safety Report 12266579 (Version 1)
Quarter: 2016Q2

REPORT INFORMATION
  Report Type: Spontaneous
  Country: US (occurrence: US)
  Receive Date: 20160414
  Receipt Date: 20160414
  Transmission Date: 20160815
  Serious: Yes (Death)
  Sender: FDA-Public Use
  Company Number: US-HOSPIRA-3241557

PATIENT
  Age: 38 Year
  Sex: Female
  Weight: 140 kg

DRUGS (9)
  1. SULFAMETHOXAZOLE AND TRIMETHOPRIM [Suspect]
     Active Substance: SULFAMETHOXAZOLE\TRIMETHOPRIM
     Indication: ANTIFUNGAL PROPHYLAXIS
     Dosage: AFTER COURSE 2
  2. MESNA. [Suspect]
     Active Substance: MESNA
     Indication: B PRECURSOR TYPE ACUTE LEUKAEMIA
     Dosage: CONTINUOUS INTRAVENOUS INFUSION OVER 42 H
     Route: 041
  3. FILGRASTIM [Suspect]
     Active Substance: FILGRASTIM
     Indication: NEUTROPENIA
  4. CYTARABINE. [Suspect]
     Active Substance: CYTARABINE
     Indication: B PRECURSOR TYPE ACUTE LEUKAEMIA
     Route: 037
  5. FILGRASTIM [Suspect]
     Active Substance: FILGRASTIM
     Indication: PROPHYLAXIS
  6. IMATINIB MESILATE [Suspect]
     Active Substance: IMATINIB MESYLATE
     Indication: B PRECURSOR TYPE ACUTE LEUKAEMIA
     Route: 048
  7. VINCRISTINE SULFATE. [Suspect]
     Active Substance: VINCRISTINE SULFATE
     Indication: B PRECURSOR TYPE ACUTE LEUKAEMIA
     Dosage: ON DAYS 4 AND 11
     Route: 042
  8. DEXAMETHASONE. [Suspect]
     Active Substance: DEXAMETHASONE
     Indication: B PRECURSOR TYPE ACUTE LEUKAEMIA
     Dosage: ON DAYS 1-4 AND 11-14
     Route: 048
  9. CYCLOPHOSPHAMIDE. [Suspect]
     Active Substance: CYCLOPHOSPHAMIDE
     Indication: B PRECURSOR TYPE ACUTE LEUKAEMIA
     Dosage: EVERY 12 H FOR SIX DOSES
     Route: 042

REACTIONS (4)
  - Small intestinal obstruction [Fatal]
  - Bacteroides infection [Fatal]
  - Sepsis [Fatal]
  - Exposure during pregnancy [Fatal]
